FAERS Safety Report 6107694-3 (Version None)
Quarter: 2009Q1

REPORT INFORMATION
  Report Type: 
  Country: None (occurrence: None)
  Receive Date: 20090309
  Receipt Date: 20090227
  Transmission Date: 20090719
  Serious: Yes (Death, Hospitalization)
  Sender: FDA-Public Use
  Company Number: A0712517A

PATIENT
  Age: 57 Year
  Sex: Male
  Weight: 115.9 kg

DRUGS (11)
  1. AVANDIA [Suspect]
     Dosage: 8MG PER DAY
     Route: 048
     Dates: start: 20011210, end: 20050126
  2. CLOPIDOGREL [Concomitant]
  3. ASPIRIN [Concomitant]
  4. CAPTOPRIL [Concomitant]
  5. ISOSORBIDE [Concomitant]
  6. ATORVASTATIN [Concomitant]
  7. NITROGLYCERIN [Concomitant]
  8. SERTRALINE [Concomitant]
  9. METOPROLOL [Concomitant]
  10. FELODIPINE [Concomitant]
  11. METOCLOPRAMIDE HYDROCHLORIDE [Concomitant]

REACTIONS (10)
  - CARDIAC ARREST [None]
  - CARDIAC FAILURE CONGESTIVE [None]
  - CEREBROVASCULAR ACCIDENT [None]
  - FLUID OVERLOAD [None]
  - FLUID RETENTION [None]
  - HEART INJURY [None]
  - HEPATIC FAILURE [None]
  - LIVER INJURY [None]
  - MYOCARDIAL INFARCTION [None]
  - PAIN [None]
